FAERS Safety Report 5214480-5 (Version None)
Quarter: 2007Q1

REPORT INFORMATION
  Report Type: 
  Country: None (occurrence: None)
  Receive Date: 20070119
  Receipt Date: 20070119
  Transmission Date: 20070707
  Serious: Yes (Life-Threatening, Hospitalization, Disabling)
  Sender: FDA-Public Use
  Company Number: None

PATIENT
  Sex: Male
  Weight: 84.8226 kg

DRUGS (9)
  1. HUMIRA [Suspect]
     Indication: RHEUMATOID ARTHRITIS
     Dosage: 40 MG  Q2WKS  IM  030
     Route: 030
     Dates: start: 20050706, end: 20061011
  2. ASPIRIN [Concomitant]
  3. COLCHICINE [Concomitant]
  4. PROPRANOLOL [Concomitant]
  5. ALLOPURINOL SODIUM [Concomitant]
  6. PREDNISONE [Concomitant]
  7. NEXIUM [Concomitant]
  8. FUROSEMIDE [Concomitant]
  9. MULTI-VITAMIN [Concomitant]

REACTIONS (19)
  - ABSCESS [None]
  - ARTHRITIS BACTERIAL [None]
  - ATRIAL FIBRILLATION [None]
  - CARDIOMYOPATHY [None]
  - DEEP VEIN THROMBOSIS [None]
  - ENTEROCOCCAL SEPSIS [None]
  - GOUT [None]
  - HAEMODIALYSIS [None]
  - HYPERTENSION [None]
  - HYPOTENSION [None]
  - MUSCULOSKELETAL PAIN [None]
  - PSEUDOMONAL SEPSIS [None]
  - PULMONARY OEDEMA [None]
  - PYREXIA [None]
  - RENAL FAILURE ACUTE [None]
  - RESPIRATORY DISTRESS [None]
  - SEPTIC SHOCK [None]
  - STAPHYLOCOCCAL SEPSIS [None]
  - TACHYCARDIA [None]
